FAERS Safety Report 10616535 (Version 1)
Quarter: 2014Q4

REPORT INFORMATION
  Report Type: Spontaneous
  Country: US (occurrence: None)
  Receive Date: 20141126
  Receipt Date: 20141126
  Transmission Date: 20150529
  Serious: Yes (Other)
  Sender: FDA-Public Use
  Company Number: None

PATIENT
  Age: 63 Year
  Sex: Male
  Weight: 62.6 kg

DRUGS (15)
  1. SERTRALINE [Concomitant]
     Active Substance: SERTRALINE HYDROCHLORIDE
  2. MULTIVITAMIN [Concomitant]
     Active Substance: VITAMINS
  3. NORTRIPTYLINE [Concomitant]
     Active Substance: NORTRIPTYLINE
  4. DILTIAZEM [Suspect]
     Active Substance: DILTIAZEM
     Indication: TACHYCARDIA
     Route: 048
     Dates: start: 20141111, end: 20141113
  5. DOCUSATE [Concomitant]
     Active Substance: DOCUSATE
  6. DILTIAZEM [Suspect]
     Active Substance: DILTIAZEM
     Indication: HYPERTENSION
     Route: 048
     Dates: start: 20141111, end: 20141113
  7. ASPIRIN. [Concomitant]
     Active Substance: ASPIRIN
  8. DILTIAZEM [Suspect]
     Active Substance: DILTIAZEM
     Indication: PALPITATIONS
     Route: 048
     Dates: start: 20141111, end: 20141113
  9. OMEPRAZOLE. [Concomitant]
     Active Substance: OMEPRAZOLE
  10. CETIRIZINE [Concomitant]
     Active Substance: CETIRIZINE HYDROCHLORIDE
  11. ETODOLAC. [Concomitant]
     Active Substance: ETODOLAC
  12. GABAPENTIN. [Concomitant]
     Active Substance: GABAPENTIN
  13. LORAZEPAM. [Concomitant]
     Active Substance: LORAZEPAM
  14. MORPHINE [Concomitant]
     Active Substance: MORPHINE
  15. METHOCARBAMOL. [Concomitant]
     Active Substance: METHOCARBAMOL

REACTIONS (4)
  - Urticaria [None]
  - Skin exfoliation [None]
  - Product substitution issue [None]
  - Local swelling [None]

NARRATIVE: CASE EVENT DATE: 20141111
